FAERS Safety Report 26080085 (Version 1)
Quarter: 2025Q4

REPORT INFORMATION
  Report Type: Spontaneous
  Country: US (occurrence: US)
  Receive Date: 20251124
  Receipt Date: 20251124
  Transmission Date: 20260117
  Serious: No
  Sender: TEVA
  Company Number: US-TEVA-VS-3393598

PATIENT
  Sex: Female

DRUGS (2)
  1. AJOVY [Suspect]
     Active Substance: FREMANEZUMAB-VFRM
     Indication: Migraine
     Dosage: AJOVY INJECTED ON UPPER THIGH, 225 MG/1.5ML
     Route: 065
  2. AJOVY [Suspect]
     Active Substance: FREMANEZUMAB-VFRM

REACTIONS (2)
  - Injection site pain [Unknown]
  - Injection site urticaria [Unknown]
